FAERS Safety Report 14169970 (Version 2)
Quarter: 2017Q4

REPORT INFORMATION
  Report Type: Spontaneous
  Country: US (occurrence: US)
  Receive Date: 20171108
  Receipt Date: 20171115
  Transmission Date: 20180321
  Serious: No
  Sender: FDA-Public Use
  Company Number: US-PFIZER INC-2017481687

PATIENT
  Age: 47 Year
  Sex: Female
  Weight: 82 kg

DRUGS (4)
  1. HYDROCHLOROTHIAZIDE. [Concomitant]
     Active Substance: HYDROCHLOROTHIAZIDE
     Indication: FLUID RETENTION
     Dosage: 25 MG, 2X/WEEK
  2. CELECOXIB. [Concomitant]
     Active Substance: CELECOXIB
     Indication: OSTEOARTHRITIS
     Dosage: 200 MG, 1X/DAY
  3. TRAMADOL. [Concomitant]
     Active Substance: TRAMADOL
     Indication: PAIN
     Dosage: 50 MG, AS NEEDED [50MG FOUR TIMES A DAY]
  4. LYRICA [Suspect]
     Active Substance: PREGABALIN
     Indication: FIBROMYALGIA
     Dosage: 75 MG, 2X/DAY
     Route: 048
     Dates: end: 20170930

REACTIONS (7)
  - Sciatica [Unknown]
  - Gait disturbance [Unknown]
  - Condition aggravated [Unknown]
  - Paraesthesia [Recovering/Resolving]
  - Burning sensation [Unknown]
  - Pain [Unknown]
  - Dysstasia [Unknown]

NARRATIVE: CASE EVENT DATE: 2017
